FAERS Safety Report 9707699 (Version 1)
Quarter: 2013Q4

REPORT INFORMATION
  Report Type: Spontaneous
  Country: NL (occurrence: NL)
  Receive Date: 20131125
  Receipt Date: 20131125
  Transmission Date: 20140711
  Serious: Yes (Death, Other)
  Sender: FDA-Public Use
  Company Number: PHHY2013NL133308

PATIENT
  Sex: Female

DRUGS (1)
  1. CYPROTERONE+ETHINYLESTRADIOL [Suspect]
     Indication: ACNE

REACTIONS (3)
  - Thrombosis [Fatal]
  - Loss of consciousness [Unknown]
  - Haematemesis [Unknown]
